FAERS Safety Report 13778295 (Version 2)
Quarter: 2017Q4

REPORT INFORMATION
  Report Type: Report from Study
  Country: None (occurrence: RO)
  Receive Date: 20170721
  Receipt Date: 20171002
  Transmission Date: 20180320
  Serious: Yes (Hospitalization, Other)
  Sender: FDA-Public Use
  Company Number: RO-ABBVIE-17K-135-2043890-00

PATIENT
  Age: 71 Year
  Sex: Male

DRUGS (1)
  1. HUMIRA [Suspect]
     Active Substance: ADALIMUMAB
     Indication: PSORIASIS
     Route: 058
     Dates: start: 20120215, end: 20170626

REACTIONS (8)
  - Inguinal hernia [Not Recovered/Not Resolved]
  - Hernia [Recovered/Resolved]
  - Treatment noncompliance [Not Recovered/Not Resolved]
  - Skin discolouration [Recovered/Resolved]
  - Skin fissures [Recovered/Resolved]
  - Pruritus [Recovered/Resolved]
  - Abdominal pain upper [Not Recovered/Not Resolved]
  - Pain in extremity [Recovering/Resolving]

NARRATIVE: CASE EVENT DATE: 201701
